FAERS Safety Report 20645248 (Version 1)
Quarter: 2022Q1

REPORT INFORMATION
  Report Type: Other
  Country: US (occurrence: US)
  Receive Date: 20220328
  Receipt Date: 20220328
  Transmission Date: 20220423
  Serious: No
  Sender: FDA-Public Use
  Company Number: US-AMNEAL PHARMACEUTICALS-2021-AMRX-03622

PATIENT

DRUGS (2)
  1. BENAZEPRIL HYDROCHLORIDE [Suspect]
     Active Substance: BENAZEPRIL HYDROCHLORIDE
     Indication: Hypertension
     Dosage: 10 MILLIGRAM, QD
     Route: 065
     Dates: start: 2021, end: 2021
  2. BENAZEPRIL HYDROCHLORIDE [Suspect]
     Active Substance: BENAZEPRIL HYDROCHLORIDE
     Dosage: 20 MILLIGRAM, QD (TOOK 10 MG 2 TABLETS)
     Route: 065
     Dates: start: 2021, end: 2021

REACTIONS (2)
  - Therapeutic response shortened [Unknown]
  - Product substitution issue [Unknown]

NARRATIVE: CASE EVENT DATE: 20210101
